FAERS Safety Report 5346788-7 (Version None)
Quarter: 2007Q2

REPORT INFORMATION
  Report Type: 
  Country: None (occurrence: None)
  Receive Date: 20070501
  Receipt Date: 20070102
  Transmission Date: 20071010
  Serious: No
  Sender: FDA-Public Use
  Company Number: VNL_0360_2007

PATIENT
  Age: 58 Year
  Sex: Female
  Weight: 70.3075 kg

DRUGS (8)
  1. APOKYN [Suspect]
     Indication: PARKINSON'S DISEASE
     Dosage: 0.3 ML QAM SC
     Route: 058
     Dates: start: 20050701
  2. APOKYN [Suspect]
     Indication: PARKINSON'S DISEASE
     Dosage: 0.36 ML 1XNIGHT SC
     Route: 058
     Dates: start: 20050701
  3. ARIMIDEX [Concomitant]
  4. SINEMET [Concomitant]
  5. SELEGILINE HCL [Concomitant]
  6. COMTAN [Concomitant]
  7. REQUIP [Concomitant]
  8. SINEMET [Concomitant]

REACTIONS (2)
  - HYPOAESTHESIA [None]
  - OEDEMA PERIPHERAL [None]
